FAERS Safety Report 4270631-0 (Version None)
Quarter: 2004Q1

REPORT INFORMATION
  Report Type: 
  Country: None (occurrence: None)
  Receive Date: 20040114
  Receipt Date: 20040109
  Transmission Date: 20041129
  Serious: Yes (Other)
  Sender: FDA-Public Use
  Company Number: PHEH2004US00680

PATIENT
  Age: 28 Year
  Sex: Female

DRUGS (7)
  1. VOLTAREN OPHTHALMIC (NVO) [Suspect]
     Indication: ANTIINFLAMMATORY THERAPY
     Dosage: 1 GTT, PRN
     Dates: start: 20030501
  2. ALPHAGAN [Concomitant]
  3. XALATAN [Concomitant]
  4. NORVASC [Concomitant]
  5. LIBRIUM [Concomitant]
  6. DIAZIDE [Concomitant]
  7. HUMULIN N [Concomitant]

REACTIONS (7)
  - ABDOMINAL PAIN [None]
  - ABNORMAL BEHAVIOUR [None]
  - BLOOD ELECTROLYTES INCREASED [None]
  - DEHYDRATION [None]
  - EYE PAIN [None]
  - INTRAOCULAR PRESSURE INCREASED [None]
  - PARANOID PERSONALITY DISORDER [None]
